FAERS Safety Report 4709590-2 (Version None)
Quarter: 2005Q3

REPORT INFORMATION
  Report Type: 
  Country: None (occurrence: None)
  Receive Date: 20050707
  Receipt Date: 20050621
  Transmission Date: 20060218
  Serious: Yes (Other)
  Sender: FDA-Public Use
  Company Number: USA050597695

PATIENT
  Age: 70 Year
  Sex: Female
  Weight: 68 kg

DRUGS (9)
  1. CYMBALTA [Suspect]
     Indication: NEUROPATHY PERIPHERAL
     Dosage: 60 MG DAY
     Dates: start: 20050404
  2. POTASSIUM CHLORIDE [Concomitant]
  3. ACETYLSALICYLIC ACID SRT [Concomitant]
  4. LIPITOR [Concomitant]
  5. TYLENOL PM [Concomitant]
  6. VIVELLE [Concomitant]
  7. MAXZIDE [Concomitant]
  8. FLONASE [Concomitant]
  9. CLARITIN [Concomitant]

REACTIONS (4)
  - DYSKINESIA [None]
  - INCORRECT DOSE ADMINISTERED [None]
  - LETHARGY [None]
  - TINNITUS [None]
